FAERS Safety Report 12988064 (Version 1)
Quarter: 2016Q4

REPORT INFORMATION
  Report Type: Report from Study
  Country: JP (occurrence: JP)
  Receive Date: 20161130
  Receipt Date: 20161130
  Transmission Date: 20170207
  Serious: Yes (Other)
  Sender: FDA-Public Use
  Company Number: JP-MYLANLABS-2016M1051467

PATIENT

DRUGS (2)
  1. METHADONE [Suspect]
     Active Substance: METHADONE HYDROCHLORIDE
     Dosage: 150MG
     Route: 048
  2. METHADONE [Suspect]
     Active Substance: METHADONE HYDROCHLORIDE
     Indication: CANCER PAIN
     Dosage: 40MG AND INCREASED
     Route: 048

REACTIONS (6)
  - Ileus [Unknown]
  - Palpitations [Unknown]
  - Nausea [Unknown]
  - Delirium [Unknown]
  - Hypoxia [Unknown]
  - Vomiting [Unknown]
